FAERS Safety Report 19517561 (Version 1)
Quarter: 2021Q3

REPORT INFORMATION
  Report Type: Spontaneous
  Country: SE (occurrence: SE)
  Receive Date: 20210712
  Receipt Date: 20210712
  Transmission Date: 20211014
  Serious: Yes (Hospitalization)
  Sender: FDA-Public Use
  Company Number: SE-TEVA-2021-SE-1931565

PATIENT
  Age: 69 Year
  Sex: Female

DRUGS (1)
  1. MIRTAZAPINE. [Suspect]
     Active Substance: MIRTAZAPINE
     Route: 065
     Dates: start: 202105

REACTIONS (4)
  - Pharyngeal swelling [Unknown]
  - Swollen tongue [Unknown]
  - Erythema [Unknown]
  - Dysphagia [Unknown]

NARRATIVE: CASE EVENT DATE: 202105
